FAERS Safety Report 7712362-8 (Version None)
Quarter: 2011Q3

REPORT INFORMATION
  Report Type: 
  Country: None (occurrence: None)
  Receive Date: 20110826
  Receipt Date: 20110816
  Transmission Date: 20111222
  Serious: No
  Sender: FDA-Public Use
  Company Number: US-B.I. PHARMACEUTICALS,INC./RIDGEFIELD-2011-BP-20162BP

PATIENT
  Sex: Male

DRUGS (3)
  1. SPIRIVA [Suspect]
     Indication: ASTHMA
     Dosage: 18 MCG
     Route: 055
     Dates: start: 20110810
  2. ADVAIR DISKUS 100/50 [Concomitant]
     Indication: ASTHMA
  3. VENTOLIN HFA [Concomitant]
     Indication: ASTHMA

REACTIONS (2)
  - DYSPNOEA [None]
  - FEELING ABNORMAL [None]
